FAERS Safety Report 9531189 (Version 1)
Quarter: 2013Q3

REPORT INFORMATION
  Report Type: Spontaneous
  Country: FR (occurrence: FR)
  Receive Date: 20130918
  Receipt Date: 20130918
  Transmission Date: 20140515
  Serious: Yes (Hospitalization)
  Sender: FDA-Public Use
  Company Number: FR-ASTRAZENECA-2013SE68681

PATIENT
  Age: 33479 Day
  Sex: Female

DRUGS (9)
  1. HYTACAND [Suspect]
     Indication: HYPERTENSION
     Dosage: 8/12.5 MG, DAILY
     Route: 048
     Dates: end: 20120727
  2. AMIODARONE [Concomitant]
  3. ATHYMIL [Concomitant]
  4. EBIXA [Concomitant]
  5. SEROPRAM [Concomitant]
  6. LEVOTHYROX [Concomitant]
  7. OMEPRAZOLE [Concomitant]
  8. SOLUPRED [Concomitant]
     Dosage: DAILY
     Route: 048
     Dates: start: 201206
  9. KARDEGIC [Concomitant]

REACTIONS (5)
  - Dehydration [Recovered/Resolved]
  - Gastroenteritis [Recovered/Resolved]
  - Vomiting [Recovered/Resolved]
  - Diarrhoea haemorrhagic [Recovered/Resolved]
  - Renal failure acute [Recovered/Resolved]
